FAERS Safety Report 14625451 (Version 3)
Quarter: 2019Q1

REPORT INFORMATION
  Report Type: Spontaneous
  Country: US (occurrence: US)
  Receive Date: 20180312
  Receipt Date: 20190311
  Transmission Date: 20190417
  Serious: No
  Sender: FDA-Public Use
  Company Number: US-ALLERGAN-1754718US

PATIENT
  Age: 94 Year
  Sex: Female

DRUGS (1)
  1. OXYTROL FOR WOMEN [Suspect]
     Active Substance: OXYBUTYNIN
     Indication: HYPERTONIC BLADDER
     Dosage: 1 PATCH APPLIED EVERY 4 DAYS
     Route: 062
     Dates: start: 201709, end: 201710

REACTIONS (4)
  - Product use complaint [Unknown]
  - Drug ineffective [Unknown]
  - Wrong technique in product usage process [Unknown]
  - Product adhesion issue [Unknown]
